FAERS Safety Report 14083543 (Version 1)
Quarter: 2017Q4

REPORT INFORMATION
  Report Type: Spontaneous
  Country: US (occurrence: US)
  Receive Date: 20171013
  Receipt Date: 20171013
  Transmission Date: 20180321
  Serious: Yes (Other)
  Sender: FDA-Public Use
  Company Number: US-ELI_LILLY_AND_COMPANY-US201710002075

PATIENT
  Age: 76 Year
  Sex: Male

DRUGS (5)
  1. CORTISONE [Concomitant]
     Active Substance: CORTISONE\HYDROCORTISONE
     Dosage: UNK, UNKNOWN
     Route: 065
  2. HUMALOG [Suspect]
     Active Substance: INSULIN LISPRO
     Dosage: ON A SLIDING SCALE, 3-4 TIMES PER DAY
     Route: 058
     Dates: start: 2007
  3. LANTUS [Concomitant]
     Active Substance: INSULIN GLARGINE
     Indication: TYPE 2 DIABETES MELLITUS
     Dosage: UNK, UNKNOWN
     Route: 065
  4. LYRICA [Concomitant]
     Active Substance: PREGABALIN
     Indication: NEUROPATHY PERIPHERAL
     Dosage: UNK, UNKNOWN
     Route: 065
  5. HUMALOG [Suspect]
     Active Substance: INSULIN LISPRO
     Indication: TYPE 2 DIABETES MELLITUS
     Dosage: ON A SLIDING SCALE, 3-4 TIMES PER DAY
     Route: 058
     Dates: start: 2007

REACTIONS (12)
  - Eating disorder [Recovered/Resolved]
  - Intervertebral disc protrusion [Not Recovered/Not Resolved]
  - Post procedural complication [Not Recovered/Not Resolved]
  - Muscle rigidity [Recovered/Resolved]
  - Blood glucose decreased [Recovered/Resolved]
  - Neuropathy peripheral [Not Recovered/Not Resolved]
  - Extra dose administered [Recovered/Resolved]
  - Blood glucose increased [Recovered/Resolved]
  - Drug dose omission [Recovering/Resolving]
  - Tremor [Recovered/Resolved]
  - Pain [Not Recovered/Not Resolved]
  - Wrong technique in product usage process [Recovered/Resolved]

NARRATIVE: CASE EVENT DATE: 2007
